FAERS Safety Report 6944541-1 (Version None)
Quarter: 2010Q3

REPORT INFORMATION
  Report Type: 
  Country: None (occurrence: None)
  Receive Date: 20100827
  Receipt Date: 20100507
  Transmission Date: 20110219
  Serious: Yes (Life-Threatening)
  Sender: FDA-Public Use
  Company Number: TR-JNJFOC-20100807552

PATIENT
  Sex: Female
  Weight: 60 kg

DRUGS (3)
  1. REMICADE [Suspect]
     Indication: CROHN'S DISEASE
     Route: 042
  2. ISOTONIC SOLUTIONS [Concomitant]
     Route: 042
  3. PREDNOL [Concomitant]
     Indication: PREMEDICATION
     Route: 042

REACTIONS (3)
  - HYPOXIA [None]
  - RESPIRATORY DISTRESS [None]
  - TACHYCARDIA [None]
